FAERS Safety Report 14134279 (Version 3)
Quarter: 2019Q1

REPORT INFORMATION
  Report Type: Spontaneous
  Country: DE (occurrence: DE)
  Receive Date: 20171027
  Receipt Date: 20190214
  Transmission Date: 20190417
  Serious: Yes (Hospitalization)
  Sender: FDA-Public Use
  Company Number: DE-ACCORD-060240

PATIENT
  Age: 54 Year
  Sex: Female

DRUGS (7)
  1. VENLAFAXINE/VENLAFAXINE HYDROCHLORIDE [Suspect]
     Active Substance: VENLAFAXINE HYDROCHLORIDE
     Indication: MAJOR DEPRESSION
     Dosage: 150-300 MG,
     Dates: start: 2006
  2. RAMIPRIL. [Concomitant]
     Active Substance: RAMIPRIL
     Indication: HYPERTENSION
  3. DOXEPIN [Suspect]
     Active Substance: DOXEPIN
     Indication: MAJOR DEPRESSION
     Dosage: ONCE OR TWICE A WEEK,ALSO RECEIVED ON 2006
     Dates: start: 2015, end: 2016
  4. SERTRALINE [Suspect]
     Active Substance: SERTRALINE HYDROCHLORIDE
     Indication: MAJOR DEPRESSION
     Dosage: 50 MG
     Dates: start: 201606
  5. LITHIUM. [Concomitant]
     Active Substance: LITHIUM
     Indication: MAJOR DEPRESSION
     Dates: start: 2006
  6. BUPROPION/BUPROPION HYDROCHLORIDE [Suspect]
     Active Substance: BUPROPION HYDROCHLORIDE
     Indication: MAJOR DEPRESSION
     Dosage: 150 TO 300 MG
  7. MELPERONE/MELPERONE HYDROCHLORIDE [Suspect]
     Active Substance: MELPERONE
     Indication: MAJOR DEPRESSION
     Dosage: 50 TO 100 MG

REACTIONS (8)
  - Abnormal behaviour [Unknown]
  - Condition aggravated [Recovering/Resolving]
  - Asthenia [None]
  - Anhedonia [None]
  - Depressed mood [None]
  - Sleep-related eating disorder [Recovering/Resolving]
  - Weight increased [None]
  - Insomnia [Unknown]
